FAERS Safety Report 4819003-8 (Version None)
Quarter: 2005Q4

REPORT INFORMATION
  Report Type: 
  Country: None (occurrence: None)
  Receive Date: 20051101
  Receipt Date: 20051101
  Transmission Date: 20060501
  Serious: Yes (Hospitalization)
  Sender: FDA-Public Use
  Company Number: None

PATIENT
  Age: 75 Year
  Sex: Female
  Weight: 62.1428 kg

DRUGS (8)
  1. LAMICTAL [Suspect]
     Indication: BIPOLAR DISORDER
     Dates: start: 20050901, end: 20051001
  2. ABILIFY [Suspect]
     Indication: BIPOLAR DISORDER
     Dates: start: 20050901, end: 20051001
  3. CELEXA [Concomitant]
  4. CALCIUM/VIT D [Concomitant]
  5. COLACE [Concomitant]
  6. COZAAR [Concomitant]
  7. ZOCOR [Concomitant]
  8. ACTONEL [Concomitant]

REACTIONS (12)
  - ACTIVITIES OF DAILY LIVING IMPAIRED [None]
  - ERYTHEMA [None]
  - EYE DISCHARGE [None]
  - FALL [None]
  - MOBILITY DECREASED [None]
  - OTORRHOEA [None]
  - PRURITUS [None]
  - PURULENCE [None]
  - PYREXIA [None]
  - RASH GENERALISED [None]
  - SECRETION DISCHARGE [None]
  - SKIN LESION [None]
